FAERS Safety Report 7007158-9 (Version None)
Quarter: 2010Q3

REPORT INFORMATION
  Report Type: 
  Country: None (occurrence: None)
  Receive Date: 20100913
  Receipt Date: 20100903
  Transmission Date: 20110219
  Serious: Yes (Hospitalization)
  Sender: FDA-Public Use
  Company Number: 2010SP024532

PATIENT
  Age: 48 Year
  Sex: Male

DRUGS (13)
  1. PEGINTERFERON ALFA-2B [Suspect]
     Indication: HEPATITIS C
     Dosage: 120 MCG;QW;SC 60 MCG;QW;SC
     Route: 058
     Dates: start: 20100224, end: 20100317
  2. PEGINTERFERON ALFA-2B [Suspect]
     Indication: HEPATITIS C
     Dosage: 120 MCG;QW;SC 60 MCG;QW;SC
     Route: 058
     Dates: start: 20100324
  3. RIBAVIRIN [Suspect]
     Indication: HEPATITIS C
     Dosage: 1000 MG;QD;PO
     Route: 048
     Dates: start: 20100224
  4. ELTROMBOPAG (ELTROMOPAG) [Suspect]
     Indication: THROMBOCYTOPENIA
     Dosage: 25 MG;QD;PO  PO    75 MG;QD;PO
     Route: 048
     Dates: start: 20100113, end: 20100126
  5. ELTROMBOPAG (ELTROMOPAG) [Suspect]
     Indication: THROMBOCYTOPENIA
     Dosage: 25 MG;QD;PO  PO    75 MG;QD;PO
     Route: 048
     Dates: start: 20100127, end: 20100209
  6. ELTROMBOPAG (ELTROMOPAG) [Suspect]
     Indication: THROMBOCYTOPENIA
     Dosage: 25 MG;QD;PO  PO    75 MG;QD;PO
     Route: 048
     Dates: start: 20100210, end: 20100223
  7. BLINDED ELTROMBOPAG (ELTROMBOPAG) [Suspect]
     Indication: THROMBOCYTOPENIA
     Dosage: 75 MG;QD;PO  100 MG;QD
     Route: 048
     Dates: start: 20100224, end: 20100302
  8. BLINDED ELTROMBOPAG (ELTROMBOPAG) [Suspect]
     Indication: THROMBOCYTOPENIA
     Dosage: 75 MG;QD;PO  100 MG;QD
     Route: 048
     Dates: start: 20100303
  9. INSULIN ASPART [Concomitant]
  10. INTERFERON ALFA-2B [Concomitant]
  11. SPASFON [Concomitant]
  12. DEXTROPROPOXYPHENE [Concomitant]
  13. PARACETAMOL [Concomitant]

REACTIONS (9)
  - CHILLS [None]
  - COAGULOPATHY [None]
  - COUGH [None]
  - GASTROINTESTINAL DISORDER [None]
  - HAEMOPTYSIS [None]
  - ILEITIS [None]
  - SPEECH DISORDER [None]
  - THROMBOCYTOPENIA [None]
  - TUBERCULOSIS [None]
